FAERS Safety Report 4590568-7 (Version None)
Quarter: 2005Q1

REPORT INFORMATION
  Report Type: 
  Country: None (occurrence: None)
  Receive Date: 20050224
  Receipt Date: 19950911
  Transmission Date: 20050727
  Serious: Yes (Life-Threatening, Hospitalization)
  Sender: FDA-Public Use
  Company Number: AU-GLAXOSMITHKLINE-B0012608A

PATIENT
  Age: 51 Year
  Sex: Female
  Weight: 60 kg

DRUGS (4)
  1. IMIGRAN [Suspect]
     Indication: MIGRAINE
     Dosage: 6MG SINGLE DOSE
     Route: 058
     Dates: start: 19950908, end: 19950908
  2. PETHIDINE [Suspect]
     Indication: MIGRAINE
     Route: 030
     Dates: start: 19950908, end: 19950908
  3. PROCHLORPERAZINE [Suspect]
     Indication: MIGRAINE
     Dosage: 12.5MG UNKNOWN
     Route: 030
     Dates: start: 19950908, end: 19950908
  4. MERSYNDOL [Suspect]
     Indication: MIGRAINE
     Route: 048
     Dates: start: 19950907, end: 19950908

REACTIONS (4)
  - ARTERIOSPASM CORONARY [None]
  - CHEST PAIN [None]
  - DYSPNOEA [None]
  - PAIN IN EXTREMITY [None]
